FAERS Safety Report 25611320 (Version 2)
Quarter: 2025Q3

REPORT INFORMATION
  Report Type: Spontaneous
  Country: JP (occurrence: JP)
  Receive Date: 20250728
  Receipt Date: 20250827
  Transmission Date: 20251020
  Serious: Yes (Hospitalization, Other)
  Sender: AMGEN
  Company Number: JP-AMGEN-JPNSP2025144642

PATIENT
  Age: 74 Year
  Sex: Male

DRUGS (7)
  1. FILGRASTIM [Suspect]
     Active Substance: FILGRASTIM
     Indication: Neutropenia
     Route: 065
  2. DOCETAXEL [Concomitant]
     Active Substance: DOCETAXEL
     Indication: Prostate cancer
  3. DOCETAXEL [Concomitant]
     Active Substance: DOCETAXEL
     Indication: Metastases to lung
  4. DOCETAXEL [Concomitant]
     Active Substance: DOCETAXEL
     Indication: Metastases to bone
  5. PREDNISOLONE [Concomitant]
     Active Substance: PREDNISOLONE
     Indication: Prostate cancer
  6. PREDNISOLONE [Concomitant]
     Active Substance: PREDNISOLONE
     Indication: Metastases to lung
     Dosage: 1 MILLIGRAM/KILOGRAM, QD
  7. PREDNISOLONE [Concomitant]
     Active Substance: PREDNISOLONE
     Indication: Metastases to bone

REACTIONS (2)
  - Vasculitis [Recovering/Resolving]
  - Febrile neutropenia [Recovered/Resolved]
